FAERS Safety Report 11738568 (Version 3)
Quarter: 2017Q4

REPORT INFORMATION
  Report Type: Spontaneous
  Country: US (occurrence: US)
  Receive Date: 20151113
  Receipt Date: 20171020
  Transmission Date: 20180320
  Serious: Yes (Hospitalization, Other)
  Sender: FDA-Public Use
  Company Number: US-DSJP-DSU-2015-127923

PATIENT

DRUGS (4)
  1. BENICAR HCT [Suspect]
     Active Substance: HYDROCHLOROTHIAZIDE\OLMESARTAN MEDOXOMIL
     Indication: HYPERTENSION
     Dosage: UNK
     Dates: start: 201110
  2. BENICAR HCT [Suspect]
     Active Substance: HYDROCHLOROTHIAZIDE\OLMESARTAN MEDOXOMIL
     Dosage: 20-12.5 MG ONE TAB DAILY
     Dates: start: 200704, end: 20120117
  3. BENICAR [Suspect]
     Active Substance: OLMESARTAN MEDOXOMIL
     Indication: HYPERTENSION
     Dosage: 12.5 MG, QD
  4. BENICAR HCT [Suspect]
     Active Substance: HYDROCHLOROTHIAZIDE\OLMESARTAN MEDOXOMIL
     Dosage: 20-12.5 MG, HALF TAB DAILY
     Dates: start: 200704, end: 20120117

REACTIONS (7)
  - Small intestinal obstruction [Unknown]
  - Large intestine polyp [Unknown]
  - Constipation [Unknown]
  - Abdominal hernia [Unknown]
  - Haemorrhoids [Unknown]
  - Acute kidney injury [Unknown]
  - Malabsorption [Unknown]

NARRATIVE: CASE EVENT DATE: 200908
